FAERS Safety Report 5683933-8 (Version None)
Quarter: 2008Q1

REPORT INFORMATION
  Report Type: 
  Country: None (occurrence: None)
  Receive Date: 20080328
  Receipt Date: 20080319
  Transmission Date: 20080703
  Serious: Yes (Other)
  Sender: FDA-Public Use
  Company Number: PHHY2008GB03538

PATIENT

DRUGS (3)
  1. ZOLADEX [Concomitant]
     Dosage: QMO
  2. FEMARA [Suspect]
     Indication: BREAST CANCER
     Dates: start: 20070101
  3. FEMARA [Suspect]
     Dosage: UNK, UNK

REACTIONS (3)
  - NEPHROTIC SYNDROME [None]
  - OEDEMA [None]
  - PROTEINURIA [None]
